FAERS Safety Report 4445349-1 (Version None)
Quarter: 2004Q3

REPORT INFORMATION
  Report Type: 
  Country: None (occurrence: None)
  Receive Date: 20040903
  Receipt Date: 20040820
  Transmission Date: 20050211
  Serious: Yes (Life-Threatening, Hospitalization)
  Sender: FDA-Public Use
  Company Number: JP-2004-030657

PATIENT
  Age: 54 Year
  Sex: Female
  Weight: 51.2 kg

DRUGS (2)
  1. FLUDARA [Suspect]
     Indication: STEM CELL TRANSPLANT
  2. CYCLOSPORINE [Suspect]
     Indication: STEM CELL TRANSPLANT

REACTIONS (6)
  - BLOOD PRESSURE INCREASED [None]
  - COAGULOPATHY [None]
  - INTRAVENTRICULAR HAEMORRHAGE [None]
  - PLATELET COUNT DECREASED [None]
  - PUTAMEN HAEMORRHAGE [None]
  - VOMITING [None]
